FAERS Safety Report 24000162 (Version 1)
Quarter: 2024Q2

REPORT INFORMATION
  Report Type: Spontaneous
  Country: CN (occurrence: None)
  Receive Date: 20240621
  Receipt Date: 20240621
  Transmission Date: 20240716
  Serious: Yes (Hospitalization)
  Sender: FDA-Public Use
  Company Number: 2024A141190

PATIENT
  Age: 21262 Day
  Sex: Male
  Weight: 72 kg

DRUGS (6)
  1. OSIMERTINIB MESYLATE [Suspect]
     Active Substance: OSIMERTINIB MESYLATE
     Indication: Lung neoplasm malignant
     Route: 048
     Dates: start: 20240508, end: 20240515
  2. OSIMERTINIB MESYLATE [Suspect]
     Active Substance: OSIMERTINIB MESYLATE
     Indication: Hepatic cancer
     Route: 048
     Dates: start: 20240508, end: 20240515
  3. OSIMERTINIB MESYLATE [Suspect]
     Active Substance: OSIMERTINIB MESYLATE
     Indication: Brain neoplasm
     Route: 048
     Dates: start: 20240508, end: 20240515
  4. OSIMERTINIB MESYLATE [Suspect]
     Active Substance: OSIMERTINIB MESYLATE
     Indication: Lung neoplasm malignant
     Route: 048
     Dates: start: 20240516
  5. OSIMERTINIB MESYLATE [Suspect]
     Active Substance: OSIMERTINIB MESYLATE
     Indication: Hepatic cancer
     Route: 048
     Dates: start: 20240516
  6. OSIMERTINIB MESYLATE [Suspect]
     Active Substance: OSIMERTINIB MESYLATE
     Indication: Brain neoplasm
     Route: 048
     Dates: start: 20240516

REACTIONS (1)
  - Furuncle [Recovering/Resolving]

NARRATIVE: CASE EVENT DATE: 20240515
